FAERS Safety Report 8212350-1 (Version None)
Quarter: 2012Q1

REPORT INFORMATION
  Report Type: 
  Country: None (occurrence: None)
  Receive Date: 20120315
  Receipt Date: 20120313
  Transmission Date: 20120608
  Serious: Yes (Death)
  Sender: FDA-Public Use
  Company Number: US-ROCHE-1043957

PATIENT
  Sex: Male
  Weight: 82.628 kg

DRUGS (1)
  1. XELODA [Suspect]
     Indication: SQUAMOUS CELL CARCINOMA
     Route: 048
     Dates: start: 20120124

REACTIONS (1)
  - METASTATIC SQUAMOUS CELL CARCINOMA [None]
